FAERS Safety Report 10488852 (Version 1)
Quarter: 2014Q4

REPORT INFORMATION
  Report Type: Spontaneous
  Country: CN (occurrence: CN)
  Receive Date: 20141002
  Receipt Date: 20141002
  Transmission Date: 20150528
  Serious: Yes (Life-Threatening, Other)
  Sender: FDA-Public Use
  Company Number: CN-JNJFOC-20140914324

PATIENT
  Age: 68 Year
  Sex: Female

DRUGS (2)
  1. SPORANOX [Suspect]
     Active Substance: ITRACONAZOLE\SODIUM CHLORIDE
     Indication: PRODUCT USED FOR UNKNOWN INDICATION
     Route: 041
     Dates: start: 20120723, end: 20120723
  2. INSULIN [Suspect]
     Active Substance: INSULIN NOS
     Indication: PRODUCT USED FOR UNKNOWN INDICATION
     Route: 065

REACTIONS (12)
  - Dyspepsia [Unknown]
  - Pneumonitis [Unknown]
  - Haemoglobin decreased [Unknown]
  - Vomiting [Unknown]
  - White blood cell count increased [Unknown]
  - Pleural fibrosis [Unknown]
  - Anaphylactic shock [Recovering/Resolving]
  - Cold sweat [Unknown]
  - Ecchymosis [Unknown]
  - Skin haemorrhage [Unknown]
  - Nausea [Unknown]
  - Blood glucose increased [Unknown]

NARRATIVE: CASE EVENT DATE: 20120723
